FAERS Safety Report 15696215 (Version 2)
Quarter: 2019Q1

REPORT INFORMATION
  Report Type: Spontaneous
  Country: US (occurrence: US)
  Receive Date: 20181206
  Receipt Date: 20190227
  Transmission Date: 20190417
  Serious: Yes (Death, Other)
  Sender: FDA-Public Use
  Company Number: PHEH2018US051096

PATIENT
  Age: 19 Year
  Sex: Male

DRUGS (1)
  1. TASIGNA [Suspect]
     Active Substance: NILOTINIB
     Indication: CHRONIC MYELOID LEUKAEMIA
     Dosage: UNK UNK, BID
     Route: 048
     Dates: start: 20130228

REACTIONS (17)
  - Arthralgia [Unknown]
  - Epistaxis [Unknown]
  - Thrombosis [Unknown]
  - Oropharyngeal pain [Unknown]
  - Upper respiratory tract infection [Unknown]
  - Dyspnoea [Unknown]
  - Anaemia [Unknown]
  - Death [Fatal]
  - Bone pain [Unknown]
  - Contusion [Unknown]
  - Osteonecrosis [Unknown]
  - Cough [Unknown]
  - Weight decreased [Unknown]
  - Eustachian tube dysfunction [Unknown]
  - Dizziness [Unknown]
  - Otitis media acute [Unknown]
  - Nasal congestion [Unknown]

NARRATIVE: CASE EVENT DATE: 201303
